FAERS Safety Report 18972199 (Version 2)
Quarter: 2021Q1

REPORT INFORMATION
  Report Type: Spontaneous
  Country: US (occurrence: US)
  Receive Date: 20210305
  Receipt Date: 20210318
  Transmission Date: 20210420
  Serious: Yes (Other)
  Sender: FDA-Public Use
  Company Number: US-APOTEX-2021AP004735

PATIENT
  Sex: Female

DRUGS (8)
  1. COREG [Concomitant]
     Active Substance: CARVEDILOL
     Indication: HYPERTENSION
     Dosage: 3.25 MILLIGRAM, BID
     Route: 065
  2. PLAVIX [Concomitant]
     Active Substance: CLOPIDOGREL BISULFATE
     Indication: COMPLICATION ASSOCIATED WITH DEVICE
     Dosage: UNK, QD
     Route: 065
  3. BABY ASPIRIN [Concomitant]
     Active Substance: ASPIRIN
     Indication: PACEMAKER GENERATED RHYTHM
     Dosage: UNK, QD
     Route: 065
  4. PENTOXIFYLLINE. [Suspect]
     Active Substance: PENTOXIFYLLINE
     Indication: RAYNAUD^S PHENOMENON
     Dosage: 1 DOSAGE FORM, QD
     Route: 065
     Dates: start: 202102, end: 20210211
  5. PENTOXIFYLLINE. [Suspect]
     Active Substance: PENTOXIFYLLINE
     Dosage: 2 DOSAGE FORM, QD
     Route: 065
  6. LASIX [Concomitant]
     Active Substance: FUROSEMIDE
     Indication: HYPERTENSION
     Dosage: UNK, TID
     Route: 065
  7. PENTOXIFYLLINE. [Suspect]
     Active Substance: PENTOXIFYLLINE
     Dosage: 3 DOSAGE FORM, QD
     Route: 065
  8. LIPITOR [Concomitant]
     Active Substance: ATORVASTATIN CALCIUM
     Indication: BLOOD CHOLESTEROL
     Dosage: 40 MILLIGRAM, B.I.WK.
     Route: 065

REACTIONS (5)
  - Gastrointestinal hypermotility [Recovered/Resolved]
  - Flatulence [Recovered/Resolved]
  - Migraine with aura [Unknown]
  - Atrial fibrillation [Recovered/Resolved]
  - Myocardial infarction [Unknown]

NARRATIVE: CASE EVENT DATE: 202102
